FAERS Safety Report 6192820-0 (Version None)
Quarter: 2009Q2

REPORT INFORMATION
  Report Type: 
  Country: None (occurrence: None)
  Receive Date: 20090518
  Receipt Date: 20090506
  Transmission Date: 20091009
  Serious: Yes (Other)
  Sender: FDA-Public Use
  Company Number: SK-NOVOPROD-287025

PATIENT
  Age: 6 Year
  Sex: Female

DRUGS (2)
  1. NORDITROPIN [Suspect]
     Indication: SMALL FOR DATES BABY
     Dosage: .5 MG, QD
     Dates: start: 20090416
  2. NORDITROPIN [Suspect]
     Indication: GROWTH HORMONE DEFICIENCY

REACTIONS (3)
  - BENIGN BONE NEOPLASM [None]
  - FIBROMA [None]
  - HAIR FOLLICLE TUMOUR BENIGN [None]
